FAERS Safety Report 15149362 (Version 1)
Quarter: 2018Q3

REPORT INFORMATION
  Report Type: Report from Study
  Country: BR (occurrence: BR)
  Receive Date: 20180716
  Receipt Date: 20180716
  Transmission Date: 20181010
  Serious: No
  Sender: FDA-Public Use
  Company Number: BR-JNJFOC-20180716887

PATIENT
  Sex: Female

DRUGS (2)
  1. STELARA [Suspect]
     Active Substance: USTEKINUMAB
     Indication: PSORIASIS
     Route: 058
     Dates: start: 20170706
  2. URSACOL [Concomitant]
     Active Substance: URSODIOL
     Route: 065

REACTIONS (2)
  - Liver disorder [Unknown]
  - Psoriasis [Unknown]
